FAERS Safety Report 14653760 (Version 1)
Quarter: 2018Q1

REPORT INFORMATION
  Report Type: Spontaneous
  Country: US (occurrence: US)
  Receive Date: 20180319
  Receipt Date: 20180319
  Transmission Date: 20180509
  Serious: No
  Sender: FDA-Public Use
  Company Number: US-PFIZER INC-2018109899

PATIENT
  Age: 75 Year
  Sex: Female

DRUGS (1)
  1. IBRANCE [Suspect]
     Active Substance: PALBOCICLIB
     Indication: BREAST CANCER
     Dosage: 125MG ONE CAPSULE BY MOUTH ONCE A DAY FOR 21 DAYS AND THEN OFF FOR 7 DAYS
     Dates: start: 201703, end: 201802

REACTIONS (1)
  - Neoplasm progression [Unknown]
